FAERS Safety Report 9071259 (Version 1)
Quarter: 2013Q1

REPORT INFORMATION
  Report Type: Report from Study
  Country: US (occurrence: US)
  Receive Date: 20130129
  Receipt Date: 20130129
  Transmission Date: 20140127
  Serious: No
  Sender: FDA-Public Use
  Company Number: US-ABBOTT-12P-163-0921045-00

PATIENT
  Sex: Female
  Weight: 61.29 kg

DRUGS (11)
  1. HUMIRA 40 MG/0.8 ML PEN [Suspect]
     Indication: RHEUMATOID ARTHRITIS
     Route: 058
     Dates: start: 20120130
  2. NAPROXEN [Concomitant]
     Indication: FIBROMYALGIA
  3. TRAMADOL [Concomitant]
     Indication: FIBROMYALGIA
  4. OMEPRAZOLE [Concomitant]
     Indication: GASTRIC ULCER
  5. BENTYL [Concomitant]
     Indication: GASTROINTESTINAL PAIN
  6. GABAPENTIN [Concomitant]
     Indication: FIBROMYALGIA
  7. SIMVASTATIN [Concomitant]
     Indication: BLOOD CHOLESTEROL INCREASED
  8. CITALOPRAM [Concomitant]
     Indication: DEPRESSION
  9. CITALOPRAM [Concomitant]
     Indication: INSOMNIA
  10. AMITRIPTYLINE [Concomitant]
     Indication: INSOMNIA
  11. METHOTREXATE [Concomitant]
     Indication: RHEUMATOID ARTHRITIS

REACTIONS (2)
  - Headache [Not Recovered/Not Resolved]
  - Back pain [Not Recovered/Not Resolved]
